FAERS Safety Report 14569861 (Version 2)
Quarter: 2018Q2

REPORT INFORMATION
  Report Type: Not Available
  Country: US (occurrence: US)
  Receive Date: 20180224
  Receipt Date: 20180419
  Transmission Date: 20180711
  Serious: No
  Sender: FDA-Public Use
  Company Number: US-NEUROCRINE BIOSCIENCES INC.-2018NBI00207

PATIENT
  Age: 76 Year
  Sex: Female

DRUGS (6)
  1. T3 [Concomitant]
     Active Substance: LIOTHYRONINE SODIUM
  2. ATIVAN [Concomitant]
     Active Substance: LORAZEPAM
  3. GRALISE [Concomitant]
     Active Substance: GABAPENTIN
  4. ESCITALOPRAM [Concomitant]
     Active Substance: ESCITALOPRAM OXALATE
  5. INGREZZA [Suspect]
     Active Substance: VALBENAZINE
     Indication: TARDIVE DYSKINESIA
     Route: 048
     Dates: start: 20171215, end: 20171218
  6. AMBIEN [Concomitant]
     Active Substance: ZOLPIDEM TARTRATE

REACTIONS (3)
  - Depression [Recovered/Resolved]
  - Cognitive disorder [Recovered/Resolved]
  - Somnolence [Unknown]

NARRATIVE: CASE EVENT DATE: 201712
